FAERS Safety Report 4436882-7 (Version None)
Quarter: 2004Q3

REPORT INFORMATION
  Report Type: 
  Country: None (occurrence: None)
  Receive Date: 20040830
  Receipt Date: 20040817
  Transmission Date: 20050211
  Serious: Yes (Death)
  Sender: FDA-Public Use
  Company Number: US-JNJFOC-20040600971

PATIENT
  Sex: Female
  Weight: 158.76 kg

DRUGS (6)
  1. RISPERDAL [Suspect]
     Indication: SCHIZOPHRENIA
     Route: 065
  2. TOPIRAMATE [Concomitant]
  3. AUGMENTIN '125' [Concomitant]
  4. AUGMENTIN '125' [Concomitant]
  5. ACTIFED [Concomitant]
  6. ACTIFED [Concomitant]
     Dosage: PATIENT HAD ONE DOSE ON 21-MAY-02

REACTIONS (9)
  - CARDIOMEGALY [None]
  - CARDIOMYOPATHY [None]
  - CONGENITAL ATRIAL SEPTAL DEFECT [None]
  - DYSPNOEA [None]
  - NASOPHARYNGITIS [None]
  - PULMONARY CONGESTION [None]
  - PULMONARY OEDEMA [None]
  - SNORING [None]
  - VENTRICULAR HYPERTROPHY [None]
